FAERS Safety Report 7762140-9 (Version None)
Quarter: 2011Q3

REPORT INFORMATION
  Report Type: 
  Country: None (occurrence: None)
  Receive Date: 20110920
  Receipt Date: 20110912
  Transmission Date: 20111222
  Serious: Yes (Other)
  Sender: FDA-Public Use
  Company Number: GB-AMGEN-GBRSP2011046523

PATIENT
  Sex: Female

DRUGS (10)
  1. SODIUM BICARBONATE [Concomitant]
     Dosage: 1 G, BID
  2. RENAL MULTIVITAMIN [Concomitant]
  3. PROLIA [Suspect]
     Indication: OSTEOPOROSIS
     Dosage: 60 MG, Q6MO
     Route: 058
     Dates: start: 20110201
  4. SEVELAMER [Concomitant]
     Dosage: 300 MG, QD
  5. EPREX [Concomitant]
     Dosage: 1000 UNIT, TID
  6. ACETAMINOPHEN [Concomitant]
     Dosage: UNK
  7. ALFACALCIDOL [Concomitant]
     Dosage: UNK
  8. AMLODIPINE [Concomitant]
     Dosage: 10 MG, QD
  9. VENOFER [Concomitant]
     Dosage: 100 MG, QMO
  10. OCTENISAN [Concomitant]
     Dosage: 1 UNK, 3 TIMES/WK

REACTIONS (5)
  - BALANCE DISORDER [None]
  - BLOOD PARATHYROID HORMONE INCREASED [None]
  - BLOOD PHOSPHORUS INCREASED [None]
  - WRIST FRACTURE [None]
  - FALL [None]
